FAERS Safety Report 7612185-4 (Version None)
Quarter: 2011Q3

REPORT INFORMATION
  Report Type: 
  Country: None (occurrence: None)
  Receive Date: 20110715
  Receipt Date: 20110701
  Transmission Date: 20111222
  Serious: Yes (Other)
  Sender: FDA-Public Use
  Company Number: DE-ARROW GEN-2011-09886

PATIENT
  Age: 39 Week
  Sex: Female
  Weight: 2.955 kg

DRUGS (4)
  1. CITALOPRAM HYDROBROMIDE [Suspect]
     Indication: ANXIETY
     Dosage: 15 MG, DAILY
     Route: 064
  2. FOLIC ACID [Concomitant]
     Indication: PROPHYLAXIS OF NEURAL TUBE DEFECT
     Dosage: 0.4 MG, DAILY
     Route: 064
  3. PAROXETINE HCL [Suspect]
     Indication: ANXIETY DISORDER
     Dosage: 10 MG, DAILY
     Route: 064
     Dates: start: 20090527
  4. ALPRAZOLAM [Concomitant]
     Indication: ANXIETY DISORDER
     Dosage: 0.25 MG, DAILY
     Route: 064
     Dates: start: 20090527

REACTIONS (1)
  - SMALL FOR DATES BABY [None]
